FAERS Safety Report 25012182 (Version 1)
Quarter: 2025Q1

REPORT INFORMATION
  Report Type: Spontaneous
  Country: US (occurrence: US)
  Receive Date: 20250226
  Receipt Date: 20250226
  Transmission Date: 20250409
  Serious: No
  Sender: TEVA
  Company Number: US-TEVA-VS-3296832

PATIENT
  Sex: Female

DRUGS (2)
  1. METOPROLOL [Suspect]
     Active Substance: METOPROLOL
     Indication: Blood pressure measurement
     Dosage: ONE TABLET ONCE PER DAY
     Route: 065
  2. METHIMAZOLE [Suspect]
     Active Substance: METHIMAZOLE
     Indication: Product used for unknown indication
     Route: 065

REACTIONS (7)
  - Productive cough [Unknown]
  - Drug hypersensitivity [Unknown]
  - Asthma [Unknown]
  - Muscle spasms [Unknown]
  - Eye disorder [Unknown]
  - Pleural thickening [Unknown]
  - Malaise [Unknown]
